FAERS Safety Report 5579058-2 (Version None)
Quarter: 2007Q4

REPORT INFORMATION
  Report Type: 
  Country: None (occurrence: None)
  Receive Date: 20071228
  Receipt Date: 20071228
  Transmission Date: 20080405
  Serious: No
  Sender: FDA-Public Use
  Company Number: None

PATIENT
  Age: 64 Year
  Sex: Male

DRUGS (1)
  1. GEMCITABINE [Suspect]
     Dosage: 200MG ONCE IV
     Route: 042
     Dates: start: 20071218, end: 20071218

REACTIONS (2)
  - RASH [None]
  - SOFT TISSUE NECROSIS [None]
